FAERS Safety Report 13915258 (Version 1)
Quarter: 2017Q3

REPORT INFORMATION
  Report Type: Report from Study
  Country: CZ (occurrence: CZ)
  Receive Date: 20170829
  Receipt Date: 20170829
  Transmission Date: 20171127
  Serious: Yes (Other)
  Sender: FDA-Public Use
  Company Number: CZ-VELOXIS PHARMACEUTICALS-2025221

PATIENT
  Age: 59 Year
  Sex: Female

DRUGS (13)
  1. SOLU-MEDROL [Concomitant]
     Active Substance: METHYLPREDNISOLONE SODIUM SUCCINATE
     Dates: start: 20170803
  2. CELLCEPT [Concomitant]
     Active Substance: MYCOPHENOLATE MOFETIL\MYCOPHENOLATE MOFETIL HYDROCHLORIDE
     Dates: start: 20170803
  3. URSOSAN [Concomitant]
     Dates: start: 201601
  4. VEROSPIRON [Concomitant]
     Active Substance: SPIRONOLACTONE
     Dates: start: 201601
  5. FURON [Concomitant]
     Active Substance: FUROSEMIDE
     Dates: start: 201601
  6. LYRICA [Concomitant]
     Active Substance: PREGABALIN
     Dates: start: 20170606
  7. KANAVIT [Concomitant]
     Dates: start: 201601
  8. LAGOSA [Concomitant]
     Dates: start: 201601
  9. TRANSMETIL [Concomitant]
     Active Substance: ADEMETIONINE
     Dates: start: 201601
  10. HELICID [Concomitant]
     Active Substance: OMEPRAZOLE
     Dates: start: 201601
  11. ENVARSUS XR [Suspect]
     Active Substance: TACROLIMUS
     Indication: LIVER TRANSPLANT
     Route: 048
     Dates: start: 20170803, end: 20170809
  12. CARVESAN [Concomitant]
     Dates: start: 201601
  13. MILURIT [Concomitant]
     Active Substance: ALLOPURINOL
     Dates: start: 201601

REACTIONS (1)
  - Epilepsy [Unknown]

NARRATIVE: CASE EVENT DATE: 20170809
